FAERS Safety Report 24456610 (Version 1)
Quarter: 2024Q4

REPORT INFORMATION
  Report Type: Report from Study
  Country: US (occurrence: US)
  Receive Date: 20241017
  Receipt Date: 20241017
  Transmission Date: 20250115
  Serious: Yes (Other)
  Sender: ABBVIE
  Company Number: US-ABBVIE-5963230

PATIENT
  Sex: Female

DRUGS (1)
  1. CREON [Suspect]
     Active Substance: PANCRELIPASE AMYLASE\PANCRELIPASE LIPASE\PANCRELIPASE PROTEASE
     Indication: Product used for unknown indication
     Route: 048
     Dates: start: 2019

REACTIONS (11)
  - Spinal compression fracture [Recovering/Resolving]
  - Rotator cuff syndrome [Recovered/Resolved]
  - Arthralgia [Not Recovered/Not Resolved]
  - Hip fracture [Recovered/Resolved]
  - Femur fracture [Recovered/Resolved]
  - Fall [Unknown]
  - Dizziness [Unknown]
  - Pain [Unknown]
  - Gait inability [Unknown]
  - Knee operation [Unknown]
  - Fall [Recovered/Resolved]

NARRATIVE: CASE EVENT DATE: 20220101
